FAERS Safety Report 6473542-5 (Version None)
Quarter: 2009Q4

REPORT INFORMATION
  Report Type: 
  Country: None (occurrence: None)
  Receive Date: 20091204
  Receipt Date: 20081015
  Transmission Date: 20100525
  Serious: Yes (Hospitalization, Other)
  Sender: FDA-Public Use
  Company Number: TR-ELI_LILLY_AND_COMPANY-TR200810004373

PATIENT
  Age: 81 Year
  Sex: Female

DRUGS (7)
  1. FORTEO [Suspect]
     Indication: OSTEOPOROSIS
     Dosage: 20 UG, DAILY (1/D)
     Route: 058
     Dates: start: 20080206
  2. NEBIVOLOL [Concomitant]
     Indication: HYPERTENSION
     Dosage: 5 MG, DAILY (1/D)
     Route: 048
  3. EBIXA [Concomitant]
     Indication: PROPHYLAXIS
     Dosage: 10 MG, 2/D
     Route: 048
  4. PRAVACHOL [Concomitant]
     Indication: BLOOD CHOLESTEROL ABNORMAL
     Dosage: UNK, DAILY (1/D)
     Route: 048
  5. EFFEXOR [Concomitant]
     Indication: DEPRESSION
     Dosage: UNK, 2/D
     Route: 048
  6. LEVOTIRON [Concomitant]
     Indication: THYROID DISORDER
     Dosage: 0.1 MG, DAILY (1/D)
     Route: 048
  7. INSULIN [Concomitant]
     Dosage: UNK, UNKNOWN
     Route: 058

REACTIONS (5)
  - DECREASED APPETITE [None]
  - EATING DISORDER [None]
  - EMBOLISM [None]
  - URINARY TRACT INFECTION [None]
  - WEIGHT DECREASED [None]
